FAERS Safety Report 4321219-4 (Version None)
Quarter: 2004Q1

REPORT INFORMATION
  Report Type: 
  Country: None (occurrence: None)
  Receive Date: 20040322
  Receipt Date: 20040120
  Transmission Date: 20041129
  Serious: No
  Sender: FDA-Public Use
  Company Number: A-US2004-04318

PATIENT
  Age: 62 Year
  Sex: Male

DRUGS (12)
  1. TRACLEER [Suspect]
     Dosage: ORAL
     Route: 048
     Dates: start: 20030901
  2. ZOCOR [Concomitant]
  3. TRICOR [Concomitant]
  4. NEURONTIN [Concomitant]
  5. CATAPRES [Concomitant]
  6. LOTENSIN [Concomitant]
  7. ALLOPURINOL [Concomitant]
  8. PROCRIT (ERYTHROPOIETIN) [Concomitant]
  9. SINGULAIR [Concomitant]
  10. LASIX [Concomitant]
  11. PREDNISONE [Concomitant]
  12. POTASSIUM (POTASSIUM) [Concomitant]

REACTIONS (2)
  - BLOOD TRIGLYCERIDES ABNORMAL [None]
  - GAMMA-GLUTAMYLTRANSFERASE INCREASED [None]
